FAERS Safety Report 4821808-4 (Version None)
Quarter: 2005Q4

REPORT INFORMATION
  Report Type: 
  Country: None (occurrence: None)
  Receive Date: 20051103
  Receipt Date: 20051020
  Transmission Date: 20060501
  Serious: Yes (Hospitalization, Other)
  Sender: FDA-Public Use
  Company Number: 21633

PATIENT
  Age: 63 Year
  Sex: Male

DRUGS (1)
  1. CISPLATIN [Suspect]
     Indication: NEOPLASM MALIGNANT

REACTIONS (7)
  - ANAEMIA [None]
  - BACTERAEMIA [None]
  - MUCOSAL INFLAMMATION [None]
  - NAUSEA [None]
  - PHARYNGITIS [None]
  - RENAL FAILURE [None]
  - STOMATITIS [None]
